FAERS Safety Report 18256496 (Version 1)
Quarter: 2020Q3

REPORT INFORMATION
  Report Type: Spontaneous
  Country: NL (occurrence: NL)
  Receive Date: 20200911
  Receipt Date: 20200911
  Transmission Date: 20201103
  Serious: Yes (Other)
  Sender: FDA-Public Use
  Company Number: NL-SA-2020SA246319

PATIENT

DRUGS (16)
  1. BUMETANIDE. [Concomitant]
     Active Substance: BUMETANIDE
     Dosage: TABLET, 2 MG (MILLIGRAM)
  2. FLUNITRAZEPAM [Concomitant]
     Active Substance: FLUNITRAZEPAM
     Dosage: TABLET, 2 MG (MILLIGRAM)
  3. PAROXETINE. [Concomitant]
     Active Substance: PAROXETINE
     Dosage: TABLET, 20 MG (MILLIGRAM)
  4. ALIROCUMAB [Suspect]
     Active Substance: ALIROCUMAB
     Indication: PRODUCT USED FOR UNKNOWN INDICATION
     Dosage: 1 DF, QOW
     Dates: start: 202005
  5. ACETYLSALICYLZUUR [Concomitant]
     Active Substance: ASPIRIN
     Dosage: TABLET, 80 MG (MILLIGRAM)
  6. ACTELSAR HCT [Concomitant]
     Dosage: TABLET, 80/12.5 MG (MILLIGRAM)
  7. TEMAZEPAM. [Concomitant]
     Active Substance: TEMAZEPAM
     Dosage: CAPSULE, 20 MG (MILLIGRAM)
  8. FUROSEMIDE. [Concomitant]
     Active Substance: FUROSEMIDE
     Dosage: TABLET 40MG
  9. PERINDOPRIL ERBUMINE. [Concomitant]
     Active Substance: PERINDOPRIL ERBUMINE
     Dosage: TABLET, 2 MG (MILLIGRAM)
  10. HYDROCHLOROTHIAZIDE;METOPROLOL [Concomitant]
     Dosage: MODIFIED?RELEASE TABLET, 100/12.5 MG (MILLIGRAM)
  11. ISOSORBIDE DINITRATE. [Concomitant]
     Active Substance: ISOSORBIDE DINITRATE
     Dosage: TABLET, 5 MG (MILLIGRAM)
  12. PANCLAMOX [Concomitant]
     Active Substance: AMOXICILLIN\CLARITHROMYCIN\PANTOPRAZOLE
     Dosage: GASTRO?RESISTANT, 1000/500/40 MG
  13. EZETIMIBE. [Concomitant]
     Active Substance: EZETIMIBE
     Dosage: TABLET, 10 MG (MILLIGRAM)
  14. PARACETAMOL COMP [ACETYLSALICYLIC ACID;PARACETAMOL] [Concomitant]
     Dosage: TABLET, 250/250/50 MG
  15. HYDROCORTISONE;KETOCONAZOLE [Concomitant]
     Dosage: 20/10/100 MG/G (MILLIGRAM PER GRAM)
  16. SPIRONOLACTONE. [Concomitant]
     Active Substance: SPIRONOLACTONE
     Dosage: TABLET, 50 MG (MILLIGRAM)

REACTIONS (1)
  - Blindness transient [Not Recovered/Not Resolved]
